FAERS Safety Report 12535399 (Version 1)
Quarter: 2016Q3

REPORT INFORMATION
  Report Type: Spontaneous
  Country: US (occurrence: US)
  Receive Date: 20160707
  Receipt Date: 20160707
  Transmission Date: 20161109
  Serious: Yes (Death, Hospitalization, Other)
  Sender: FDA-Public Use
  Company Number: US-CIPLA LTD.-2012US00362

PATIENT

DRUGS (6)
  1. CARBOPLATIN. [Suspect]
     Active Substance: CARBOPLATIN
     Indication: METASTASES TO MENINGES
     Dosage: AUC6 ON DAY 1 WEEKLY FOR 3 WEEKS OF A 4-WEEK CYCLE
  2. PACLITAXEL. [Suspect]
     Active Substance: PACLITAXEL
     Dosage: 100 MG/M2, WEEKLY
     Dates: start: 200701
  3. CYTOXAN [Concomitant]
     Active Substance: CYCLOPHOSPHAMIDE
     Indication: BREAST CANCER
     Dosage: UNK
     Route: 065
     Dates: start: 200606
  4. PACLITAXEL. [Suspect]
     Active Substance: PACLITAXEL
     Indication: METASTASES TO MENINGES
     Dosage: 100 MG/M2, UNK
     Route: 065
     Dates: start: 200607
  5. ADRIAMYCIN [Concomitant]
     Active Substance: DOXORUBICIN HYDROCHLORIDE
     Indication: BREAST CANCER
     Dosage: UNK
     Route: 065
     Dates: start: 200606
  6. DOCETAXEL. [Suspect]
     Active Substance: DOCETAXEL
     Indication: BREAST CANCER
     Dosage: 100 MG/M2,
     Route: 065

REACTIONS (10)
  - Hydrocephalus [Unknown]
  - Metastases to meninges [Unknown]
  - Gait disturbance [Recovered/Resolved]
  - Incontinence [Unknown]
  - Anaemia [Unknown]
  - Urosepsis [Fatal]
  - Metastatic neoplasm [Unknown]
  - Neutropenia [Unknown]
  - Neuropathy peripheral [Unknown]
  - Abasia [Recovered/Resolved]

NARRATIVE: CASE EVENT DATE: 200612
